FAERS Safety Report 24651069 (Version 1)
Quarter: 2024Q4

REPORT INFORMATION
  Report Type: Spontaneous
  Country: GB (occurrence: GB)
  Receive Date: 20241122
  Receipt Date: 20241122
  Transmission Date: 20250114
  Serious: Yes (Other)
  Sender: ORGANON
  Company Number: None

PATIENT
  Age: 22 Year
  Sex: Male
  Weight: 84 kg

DRUGS (2)
  1. MIRTAZAPINE [Suspect]
     Active Substance: MIRTAZAPINE
     Dosage: ONE TO BE TAKEN AT NIGHT
  2. PREGABALIN [Concomitant]
     Active Substance: PREGABALIN
     Dosage: ONE TO BE TAKEN TWICE A DAY
     Dates: start: 20241108

REACTIONS (1)
  - Libido decreased [Unknown]
